FAERS Safety Report 20713504 (Version 2)
Quarter: 2022Q4

REPORT INFORMATION
  Report Type: Spontaneous
  Country: CH (occurrence: CH)
  Receive Date: 20220415
  Receipt Date: 20221017
  Transmission Date: 20230113
  Serious: Yes (Hospitalization)
  Sender: FDA-Public Use
  Company Number: None

PATIENT
  Age: 63 Year
  Sex: Male

DRUGS (7)
  1. ZYPREXA [Interacting]
     Active Substance: OLANZAPINE
     Indication: Depression
     Dosage: 10 MG, UNKNOWN
     Route: 065
  2. PAROXETINE [Interacting]
     Active Substance: PAROXETINE
     Indication: Depression
     Dosage: 20 MG, UNKNOWN
     Route: 065
     Dates: start: 20220204
  3. PAROXETINE [Interacting]
     Active Substance: PAROXETINE
     Dosage: 40 MG, UNKNOWN
     Route: 065
     Dates: end: 20220320
  4. DIPHENHYDRAMINE HYDROCHLORIDE [Concomitant]
     Active Substance: DIPHENHYDRAMINE HYDROCHLORIDE
     Indication: Insomnia
     Dosage: 50 MG, UNK
     Route: 065
     Dates: start: 20220221, end: 20220320
  5. SERTRALINE [Concomitant]
     Active Substance: SERTRALINE HYDROCHLORIDE
     Dosage: UNK, UNKNOWN
     Dates: end: 202201
  6. DUTASTERIDE\TAMSULOSIN [Concomitant]
     Active Substance: DUTASTERIDE\TAMSULOSIN
     Dosage: UNK, UNKNOWN
  7. ALPRAZOLAM [Concomitant]
     Active Substance: ALPRAZOLAM
     Dosage: UNK, AS NECESSARY

REACTIONS (5)
  - Serotonin syndrome [Recovered/Resolved]
  - Drug interaction [Recovered/Resolved]
  - Constipation [Not Recovered/Not Resolved]
  - Urinary retention [Unknown]
  - Dry mouth [Unknown]

NARRATIVE: CASE EVENT DATE: 20220221
